FAERS Safety Report 7234823-0 (Version None)
Quarter: 2011Q1

REPORT INFORMATION
  Report Type: 
  Country: None (occurrence: None)
  Receive Date: 20110120
  Receipt Date: 20110112
  Transmission Date: 20110831
  Serious: Yes (Other)
  Sender: FDA-Public Use
  Company Number: AU-AMGEN-AUSSP2011001963

PATIENT

DRUGS (1)
  1. ENBREL [Suspect]
     Indication: POLYARTHRITIS
     Dosage: UNK
     Dates: end: 20110110

REACTIONS (2)
  - PSYCHOTIC DISORDER [None]
  - URINARY TRACT INFECTION [None]
